FAERS Safety Report 26184215 (Version 2)
Quarter: 2025Q4

REPORT INFORMATION
  Report Type: Spontaneous
  Country: US (occurrence: US)
  Receive Date: 20251222
  Receipt Date: 20251227
  Transmission Date: 20260117
  Serious: No
  Sender: SANOFI AVENTIS
  Company Number: US-SA-2025SA377768

PATIENT
  Age: 63 Year
  Sex: Female

DRUGS (1)
  1. DUPIXENT [Suspect]
     Active Substance: DUPILUMAB
     Indication: Dermatitis atopic
     Dosage: 300 MG, QOW
     Route: 058
     Dates: start: 202511

REACTIONS (8)
  - Bone disorder [Unknown]
  - Chest pain [Unknown]
  - Blood pressure increased [Unknown]
  - Dyspnoea [Unknown]
  - Osteoporosis [Unknown]
  - Muscle spasms [Unknown]
  - Sleep disorder due to a general medical condition [Unknown]
  - Pain in extremity [Unknown]

NARRATIVE: CASE EVENT DATE: 20250101
